FAERS Safety Report 8606214-9 (Version None)
Quarter: 2012Q3

REPORT INFORMATION
  Report Type: 
  Country: None (occurrence: None)
  Receive Date: 20120820
  Receipt Date: 20120813
  Transmission Date: 20120928
  Serious: Yes (Other)
  Sender: FDA-Public Use
  Company Number: US-ACTELION-A-US2012-63795

PATIENT
  Age: 39 Year
  Sex: Female

DRUGS (3)
  1. COUMADIN [Concomitant]
  2. EPOPROSTENOL SODIUM [Suspect]
     Indication: PULMONARY ARTERIAL HYPERTENSION
     Dosage: 17.5 NG/KG, PER MIN
     Route: 042
     Dates: start: 20120107
  3. ADCIRCA [Concomitant]

REACTIONS (2)
  - PRODUCT QUALITY ISSUE [None]
  - DEVICE OCCLUSION [None]
